FAERS Safety Report 4590017-9 (Version None)
Quarter: 2005Q1

REPORT INFORMATION
  Report Type: 
  Country: None (occurrence: None)
  Receive Date: 20050218
  Receipt Date: 20050218
  Transmission Date: 20050727
  Serious: Yes (Congenital Anomaly)
  Sender: FDA-Public Use
  Company Number: None

PATIENT
  Age: 51 Year
  Sex: Female
  Weight: 72.5755 kg

DRUGS (1)
  1. PROMETRIUM [Suspect]
     Indication: MENOPAUSE
     Dosage: 1

REACTIONS (6)
  - ABASIA [None]
  - DRUG EFFECT DECREASED [None]
  - DYSPNOEA [None]
  - DYSTONIA [None]
  - SOMNOLENCE [None]
  - TREMOR [None]
